FAERS Safety Report 8419611-1 (Version None)
Quarter: 2012Q2

REPORT INFORMATION
  Report Type: 
  Country: None (occurrence: None)
  Receive Date: 20120607
  Receipt Date: 20120601
  Transmission Date: 20120825
  Serious: Yes (Hospitalization, Disabling, Other)
  Sender: FDA-Public Use
  Company Number: US-MERCK-1202USA02464

PATIENT
  Age: 61 Year
  Sex: Female
  Weight: 59 kg

DRUGS (5)
  1. FOSAMAX [Suspect]
     Indication: OSTEOPOROSIS
     Route: 048
     Dates: start: 20010810, end: 20100301
  2. LIPITOR [Concomitant]
     Route: 065
  3. HORMONES (UNSPECIFIED) [Concomitant]
     Route: 065
     Dates: start: 19950101, end: 20010101
  4. PREMPRO [Concomitant]
     Indication: MENOPAUSE
     Route: 065
  5. ZOCOR [Concomitant]
     Route: 048

REACTIONS (28)
  - SKIN LESION [None]
  - FALL [None]
  - LOW TURNOVER OSTEOPATHY [None]
  - BREAST DISORDER [None]
  - CARPAL TUNNEL SYNDROME [None]
  - CONSTIPATION [None]
  - SYNOVIAL CYST [None]
  - INNER EAR DISORDER [None]
  - OSTEOPENIA [None]
  - PAIN IN EXTREMITY [None]
  - FEMUR FRACTURE [None]
  - RESTLESS LEGS SYNDROME [None]
  - ARTHRALGIA [None]
  - OROPHARYNGEAL PAIN [None]
  - VERTIGO [None]
  - OSTEOARTHRITIS [None]
  - TOOTH DISORDER [None]
  - LUMBAR SPINAL STENOSIS [None]
  - TENDONITIS [None]
  - SINUSITIS [None]
  - DIABETIC NEUROPATHY [None]
  - DIVERTICULITIS [None]
  - MALIGNANT MELANOMA [None]
  - ADNEXA UTERI MASS [None]
  - TYPE 2 DIABETES MELLITUS [None]
  - IRRITABLE BOWEL SYNDROME [None]
  - HYPOTHYROIDISM [None]
  - DRUG INEFFECTIVE [None]
